FAERS Safety Report 20735078 (Version 1)
Quarter: 2022Q2

REPORT INFORMATION
  Report Type: Spontaneous
  Country: US (occurrence: US)
  Receive Date: 20220421
  Receipt Date: 20220421
  Transmission Date: 20220721
  Serious: Yes (Other)
  Sender: FDA-Public Use
  Company Number: US-PFIZER INC-202200561330

PATIENT
  Age: 59 Year
  Sex: Female

DRUGS (4)
  1. XELJANZ XR [Suspect]
     Active Substance: TOFACITINIB CITRATE
     Indication: Rheumatoid arthritis
     Dosage: 11 MG
  2. HUMIRA [Suspect]
     Active Substance: ADALIMUMAB
     Dosage: UNK
     Route: 058
  3. REMICADE [Suspect]
     Active Substance: INFLIXIMAB
     Dosage: UNK
  4. RITUXAN [Suspect]
     Active Substance: RITUXIMAB
     Dosage: UNK, WEEKLY

REACTIONS (8)
  - Anaphylactic shock [Unknown]
  - Rheumatoid arthritis [Unknown]
  - Cataract [Unknown]
  - Musculoskeletal disorder [Unknown]
  - Mental impairment [Unknown]
  - Thoracic outlet syndrome [Unknown]
  - Decubitus ulcer [Unknown]
  - Cognitive disorder [Unknown]

NARRATIVE: CASE EVENT DATE: 20210101
